FAERS Safety Report 12811129 (Version 1)
Quarter: 2016Q4

REPORT INFORMATION
  Report Type: Spontaneous
  Country: US (occurrence: US)
  Receive Date: 20161005
  Receipt Date: 20161005
  Transmission Date: 20170207
  Serious: Yes (Disabling)
  Sender: FDA-Public Use
  Company Number: None

PATIENT
  Age: 58 Year
  Sex: Female
  Weight: 95.26 kg

DRUGS (7)
  1. ANASTROZOLE. [Concomitant]
     Active Substance: ANASTROZOLE
  2. NORTRIPTLINE HCL [Concomitant]
  3. HYOSCYAMINE SULF 0.125 TAB [Suspect]
     Active Substance: HYOSCYAMINE SULFATE
     Indication: PAIN
     Route: 048
     Dates: start: 20160905, end: 20160921
  4. METFORMIN HYDROCHLORIDE. [Concomitant]
     Active Substance: METFORMIN HYDROCHLORIDE
  5. AMLODIPINE BESYLATE. [Concomitant]
     Active Substance: AMLODIPINE BESYLATE
  6. LISINOPRIL-HCTZ [Concomitant]
     Active Substance: HYDROCHLOROTHIAZIDE\LISINOPRIL
  7. HYOSCYAMINE SULF 0.125 TAB [Suspect]
     Active Substance: HYOSCYAMINE SULFATE
     Indication: ABDOMINAL PAIN UPPER
     Route: 048
     Dates: start: 20160905, end: 20160921

REACTIONS (5)
  - Nervous system disorder [None]
  - Dizziness [None]
  - Product use issue [None]
  - Pyrexia [None]
  - Dry mouth [None]

NARRATIVE: CASE EVENT DATE: 20160905
